FAERS Safety Report 6475358-2 (Version None)
Quarter: 2009Q4

REPORT INFORMATION
  Report Type: 
  Country: None (occurrence: None)
  Receive Date: 20091204
  Receipt Date: 20091125
  Transmission Date: 20100525
  Serious: Yes (Other)
  Sender: FDA-Public Use
  Company Number: ES-JNJFOC-20090700891

PATIENT
  Sex: Male
  Weight: 82 kg

DRUGS (6)
  1. INVEGA [Suspect]
     Route: 048
  2. INVEGA [Suspect]
     Route: 048
  3. INVEGA [Suspect]
     Indication: SCHIZOPHRENIA
     Route: 048
  4. CLOZAPINE [Concomitant]
     Indication: SCHIZOPHRENIA
  5. ALL OTHER THERAPEUTIC DRUGS [Concomitant]
     Indication: ERECTILE DYSFUNCTION
  6. ALL OTHER THERAPEUTIC DRUGS [Concomitant]

REACTIONS (2)
  - ANXIETY [None]
  - DEPRESSIVE SYMPTOM [None]
